FAERS Safety Report 9197070 (Version 1)
Quarter: 2013Q1

REPORT INFORMATION
  Report Type: Other
  Country: US (occurrence: US)
  Receive Date: 20130328
  Receipt Date: 20130328
  Transmission Date: 20140127
  Serious: Yes (Hospitalization, Other)
  Sender: FDA-Public Use
  Company Number: US-NAPPMUNDI-DEU-2013-0011071

PATIENT
  Age: 56 Year
  Sex: Male

DRUGS (1)
  1. MORPHINE SULFATE (SIMILAR TO NDA 19-516) [Suspect]
     Indication: ANALGESIC THERAPY
     Dosage: 120 MG, BID
     Route: 048

REACTIONS (5)
  - Renal failure acute [Recovered/Resolved]
  - Metabolic encephalopathy [Unknown]
  - Renal tubular necrosis [Unknown]
  - Urinary tract infection [Unknown]
  - Stupor [Unknown]
